FAERS Safety Report 5500860-7 (Version None)
Quarter: 2007Q4

REPORT INFORMATION
  Report Type: 
  Country: None (occurrence: None)
  Receive Date: 20071029
  Receipt Date: 20071018
  Transmission Date: 20080405
  Serious: Yes (Disabling, Other)
  Sender: FDA-Public Use
  Company Number: CH-WYE-G00488607

PATIENT
  Age: 44 Year
  Sex: Male
  Weight: 85 kg

DRUGS (2)
  1. EFFEXOR [Suspect]
     Indication: DEPRESSION
     Dosage: 2X150MG OR 375MG
     Dates: start: 20060601
  2. EFFEXOR [Suspect]
     Dosage: UNSPECIFIED
     Dates: start: 20070101

REACTIONS (7)
  - COORDINATION ABNORMAL [None]
  - DISTURBANCE IN ATTENTION [None]
  - DRUG WITHDRAWAL SYNDROME [None]
  - DYSARTHRIA [None]
  - HALLUCINATION, VISUAL [None]
  - HYPOAESTHESIA [None]
  - TREMOR [None]
